FAERS Safety Report 25786146 (Version 1)
Quarter: 2025Q3

REPORT INFORMATION
  Report Type: Spontaneous
  Country: US (occurrence: None)
  Receive Date: 20250909
  Receipt Date: 20250909
  Transmission Date: 20251021
  Serious: Yes (Hospitalization)
  Sender: FDA-CTU
  Company Number: None

PATIENT
  Age: 66 Year
  Sex: Male
  Weight: 92 kg

DRUGS (22)
  1. OTEZLA [Suspect]
     Active Substance: APREMILAST
     Indication: Psoriasis
     Dosage: FREQUENCY : TWICE A DAY;?
     Route: 048
     Dates: start: 20250708, end: 20250907
  2. ALLOPURINOL [Concomitant]
     Active Substance: ALLOPURINOL
  3. METOLAZONE [Concomitant]
     Active Substance: METOLAZONE
  4. APREMILAST [Concomitant]
     Active Substance: APREMILAST
  5. SULFASALAZINE [Concomitant]
     Active Substance: SULFASALAZINE
  6. ATORVASTATIN [Concomitant]
     Active Substance: ATORVASTATIN
  7. BACITRACIN [Concomitant]
     Active Substance: BACITRACIN
  8. BACLOFEN [Concomitant]
     Active Substance: BACLOFEN
  9. BUMETANIDE [Concomitant]
     Active Substance: BUMETANIDE
  10. OMEPRAZOLE [Concomitant]
     Active Substance: OMEPRAZOLE
  11. CARVEDILOL [Concomitant]
     Active Substance: CARVEDILOL
  12. CEPHALEXIN [Concomitant]
     Active Substance: CEPHALEXIN
  13. ONDANSETRON [Concomitant]
     Active Substance: ONDANSETRON
  14. FINASTERIDE [Concomitant]
     Active Substance: FINASTERIDE
  15. FLUOXETINE [Concomitant]
     Active Substance: FLUOXETINE HYDROCHLORIDE
  16. GABAPENTIN [Concomitant]
     Active Substance: GABAPENTIN
  17. HYDRALAZINE [Concomitant]
     Active Substance: HYDRALAZINE HYDROCHLORIDE
  18. ACETAMINOPHEN\HYDROCODONE [Concomitant]
     Active Substance: ACETAMINOPHEN\HYDROCODONE
  19. Insulin aspart (Fiasp) [Concomitant]
  20. LANTUS [Concomitant]
     Active Substance: INSULIN GLARGINE
  21. ISOSORBIDE MONONITRATE [Concomitant]
     Active Substance: ISOSORBIDE MONONITRATE
  22. ARAVA [Concomitant]
     Active Substance: LEFLUNOMIDE

REACTIONS (4)
  - Hallucination [None]
  - Confusional state [None]
  - Tremor [None]
  - Cognitive disorder [None]

NARRATIVE: CASE EVENT DATE: 20250907
